FAERS Safety Report 21342937 (Version 1)
Quarter: 2022Q3

REPORT INFORMATION
  Report Type: Report from Study
  Country: US (occurrence: US)
  Receive Date: 20220916
  Receipt Date: 20220916
  Transmission Date: 20221026
  Serious: Yes (Hospitalization, Other)
  Sender: FDA-Public Use
  Company Number: US-NOVARTISTESTPH-NVSC2022US207777

PATIENT
  Age: 54 Year
  Sex: Female

DRUGS (2)
  1. MAYZENT [Suspect]
     Active Substance: SIPONIMOD
     Indication: Multiple sclerosis
     Dosage: 0.25 MG, OTHER (DAY 1 0.25MG, DAY 2 0.25 MG, DAY 3 0.5 MG, DAY 4 0.75 MG, THEN MAINTENANCE DOSE 1 MG
     Route: 048
     Dates: start: 20220908
  2. MAYZENT [Suspect]
     Active Substance: SIPONIMOD
     Dosage: 1 MG, QD (1 MG STARTER PACK DOSES 1 AND 2 (0.25))
     Route: 048
     Dates: start: 20220909, end: 20220910

REACTIONS (1)
  - Seizure [Recovered/Resolved]

NARRATIVE: CASE EVENT DATE: 20220910
